FAERS Safety Report 7868214-6 (Version None)
Quarter: 2011Q4

REPORT INFORMATION
  Report Type: 
  Country: None (occurrence: None)
  Receive Date: 20111028
  Receipt Date: 20111026
  Transmission Date: 20120403
  Serious: Yes (Disabling)
  Sender: FDA-Public Use
  Company Number: US-MERCK-1108USA03121

PATIENT
  Sex: Female

DRUGS (2)
  1. FOSAMAX PLUS D [Suspect]
     Indication: PROPHYLAXIS
     Route: 048
     Dates: start: 20061101
  2. FOSAMAX [Suspect]
     Indication: PROPHYLAXIS
     Route: 048
     Dates: start: 20010601, end: 20080801

REACTIONS (2)
  - FEMUR FRACTURE [None]
  - LIMB ASYMMETRY [None]
